FAERS Safety Report 10238474 (Version 1)
Quarter: 2014Q2

REPORT INFORMATION
  Report Type: Spontaneous
  Country: US (occurrence: None)
  Receive Date: 20140613
  Receipt Date: 20140613
  Transmission Date: 20141212
  Serious: Yes (Other)
  Sender: FDA-Public Use
  Company Number: None

PATIENT
  Age: 49 Year
  Sex: Female

DRUGS (4)
  1. TECFIDERA 120 MG BIOGEN [Suspect]
     Indication: MULTIPLE SCLEROSIS
     Route: 048
     Dates: start: 20140425, end: 20140502
  2. SERTRALINE [Concomitant]
  3. GABAPENTIN [Suspect]
  4. BACLOFEN [Suspect]

REACTIONS (2)
  - Upper respiratory tract infection [None]
  - Malaise [None]
